FAERS Safety Report 7479506-7 (Version None)
Quarter: 2011Q2

REPORT INFORMATION
  Report Type: 
  Country: None (occurrence: None)
  Receive Date: 20110513
  Receipt Date: 20110428
  Transmission Date: 20111010
  Serious: No
  Sender: FDA-Public Use
  Company Number: US-ALLERGAN-1100705US

PATIENT
  Age: 60 Year
  Sex: Female

DRUGS (8)
  1. RESTASIS [Suspect]
     Indication: CATARACT
     Dosage: 1 GTT, BID
     Route: 047
  2. ZOLOFT [Concomitant]
  3. HYDROCHLOROTHIAZIDE [Concomitant]
  4. MOBIC [Concomitant]
  5. RESTASIS [Suspect]
     Indication: DRY EYE
     Dosage: 1 GTT, BID
     Route: 047
     Dates: start: 20101201
  6. ALLEGRA [Concomitant]
  7. TRAZODONE HCL [Concomitant]
  8. LUNESTA [Concomitant]

REACTIONS (11)
  - PARANASAL SINUS HYPERSECRETION [None]
  - EYE DISCHARGE [None]
  - VISION BLURRED [None]
  - FOREIGN BODY SENSATION IN EYES [None]
  - EYE PAIN [None]
  - LACRIMATION INCREASED [None]
  - EYE IRRITATION [None]
  - SUPERFICIAL INJURY OF EYE [None]
  - EYE SWELLING [None]
  - OCULAR HYPERAEMIA [None]
  - CONJUNCTIVITIS BACTERIAL [None]
